FAERS Safety Report 4519248-0 (Version None)
Quarter: 2004Q4

REPORT INFORMATION
  Report Type: 
  Country: None (occurrence: None)
  Receive Date: 20041201
  Receipt Date: 20041117
  Transmission Date: 20050328
  Serious: Yes (Death)
  Sender: FDA-Public Use
  Company Number: 2004JP002037

PATIENT
  Age: 39 Year
  Sex: Male

DRUGS (1)
  1. PROGRAF [Suspect]
     Indication: BONE MARROW TRANSPLANT
     Dosage: 3.00MG
     Route: 048

REACTIONS (3)
  - ABDOMINAL PAIN [None]
  - HERPES ZOSTER [None]
  - POST PROCEDURAL PAIN [None]
